FAERS Safety Report 12536837 (Version 1)
Quarter: 2016Q3

REPORT INFORMATION
  Report Type: Report from Study
  Country: JP (occurrence: JP)
  Receive Date: 20160707
  Receipt Date: 20160707
  Transmission Date: 20161109
  Serious: Yes (Hospitalization)
  Sender: FDA-Public Use
  Company Number: JP-SA-2016SA122791

PATIENT
  Age: 62 Year
  Sex: Male
  Weight: 67.9 kg

DRUGS (4)
  1. PLAVIX [Suspect]
     Active Substance: CLOPIDOGREL BISULFATE
     Indication: ARTERIOSCLEROSIS
     Route: 065
     Dates: start: 20120727, end: 20140710
  2. BIOFERMIN [Concomitant]
     Active Substance: BACILLUS SUBTILIS\LACTOBACILLUS ACIDOPHILUS\STREPTOCOCCUS FAECAIS
     Dates: start: 20130611, end: 20130615
  3. XYLESTESIN [Concomitant]
     Dates: start: 20140114, end: 20140114
  4. GASRICK [Concomitant]

REACTIONS (4)
  - Urticaria chronic [Recovering/Resolving]
  - Lymphadenitis [Recovered/Resolved]
  - Onychoclasis [Recovering/Resolving]
  - Haemorrhage subcutaneous [Recovered/Resolved]

NARRATIVE: CASE EVENT DATE: 20130523
